FAERS Safety Report 8624950-5 (Version None)
Quarter: 2012Q3

REPORT INFORMATION
  Report Type: 
  Country: None (occurrence: None)
  Receive Date: 20120827
  Receipt Date: 20120817
  Transmission Date: 20120928
  Serious: Yes (Hospitalization)
  Sender: FDA-Public Use
  Company Number: IT-PFIZER INC-2012197142

PATIENT
  Age: 87 Year
  Sex: Male

DRUGS (11)
  1. LASIX [Concomitant]
     Indication: HYPERTENSION
     Dosage: UNK
     Dates: start: 20090101
  2. RAMIPRIL [Suspect]
     Indication: HYPERTENSION
     Dosage: 5 MG, 1X/DAY
     Route: 048
     Dates: start: 20110801, end: 20120805
  3. METOPROLOL [Concomitant]
     Dosage: UNK
  4. GLUCOPHAGE [Concomitant]
     Indication: TYPE 2 DIABETES MELLITUS
     Dosage: UNK
     Dates: start: 20120101, end: 20120805
  5. ROSUVASTATIN [Concomitant]
     Dosage: UNK
  6. PROMAZINE HYDROCHLORIDE [Concomitant]
     Dosage: UNK
  7. TERAZOSIN [Concomitant]
     Dosage: UNK
  8. NEXIUM [Concomitant]
     Dosage: UNK
  9. HALOPERIDOL LACTATE [Concomitant]
     Dosage: UNK
  10. REPAGLINIDE [Concomitant]
     Dosage: UNK
  11. ASPIRIN [Concomitant]
     Dosage: UNK

REACTIONS (2)
  - BLOOD SODIUM INCREASED [None]
  - RENAL FAILURE CHRONIC [None]
